FAERS Safety Report 4753601-5 (Version None)
Quarter: 2005Q3

REPORT INFORMATION
  Report Type: 
  Country: None (occurrence: None)
  Receive Date: 20050826
  Receipt Date: 20040820
  Transmission Date: 20060218
  Serious: No
  Sender: FDA-Public Use
  Company Number: US-GLAXOSMITHKLINE-A0522923A

PATIENT
  Sex: Female

DRUGS (3)
  1. BECONASE [Suspect]
     Dosage: 1SPR TWICE PER DAY
     Route: 045
     Dates: end: 20030801
  2. FLONASE [Suspect]
     Dosage: 1SPR TWICE PER DAY
     Route: 045
     Dates: start: 20030801
  3. THYROID TAB [Concomitant]

REACTIONS (2)
  - DRUG INEFFECTIVE [None]
  - MALAISE [None]
